FAERS Safety Report 8102855-6 (Version None)
Quarter: 2012Q1

REPORT INFORMATION
  Report Type: 
  Country: None (occurrence: None)
  Receive Date: 20120201
  Receipt Date: 20120114
  Transmission Date: 20120608
  Serious: Yes (Other)
  Sender: FDA-Public Use
  Company Number: US-JNJCP-30000086248

PATIENT
  Age: 38 Year
  Sex: Female
  Weight: 73 kg

DRUGS (1)
  1. ROC MULTI CORR 4-ZONE DLY MOIST SPF 30 USA RCMCDMUS [Suspect]
     Dosage: DIME SIZE AMOUNT ONCE A DAY
     Route: 061
     Dates: start: 20120111, end: 20120113

REACTIONS (4)
  - APPLICATION SITE PRURITUS [None]
  - APPLICATION SITE RASH [None]
  - APPLICATION SITE PAIN [None]
  - APPLICATION SITE PAPULES [None]
